FAERS Safety Report 23246670 (Version 1)
Quarter: 2023Q4

REPORT INFORMATION
  Report Type: Spontaneous
  Country: TR (occurrence: TR)
  Receive Date: 20231130
  Receipt Date: 20231130
  Transmission Date: 20240110
  Serious: Yes (Death, Other)
  Sender: FDA-Public Use
  Company Number: TR-AMGEN-TURSP2023210710

PATIENT

DRUGS (2)
  1. BEVACIZUMAB [Suspect]
     Active Substance: BEVACIZUMAB
     Indication: Hepatocellular carcinoma
     Dosage: UNK
     Route: 065
  2. ATEZOLIZUMAB [Suspect]
     Active Substance: ATEZOLIZUMAB
     Indication: Hepatocellular carcinoma
     Dosage: UNK
     Route: 065

REACTIONS (14)
  - Hepatocellular carcinoma [Fatal]
  - Immune-mediated thyroiditis [Unknown]
  - Immune-mediated adverse reaction [Unknown]
  - Oesophageal varices haemorrhage [Unknown]
  - Proteinuria [Unknown]
  - Pruritus [Unknown]
  - Rash [Unknown]
  - Aspartate aminotransferase increased [Unknown]
  - Fatigue [Unknown]
  - Hypertension [Unknown]
  - Diarrhoea [Unknown]
  - Platelet count decreased [Unknown]
  - Therapy partial responder [Unknown]
  - Off label use [Unknown]
